FAERS Safety Report 6382237-8 (Version None)
Quarter: 2009Q3

REPORT INFORMATION
  Report Type: 
  Country: None (occurrence: None)
  Receive Date: 20090928
  Receipt Date: 20090928
  Transmission Date: 20100115
  Serious: Yes (Life-Threatening)
  Sender: FDA-Public Use
  Company Number: None

PATIENT
  Sex: Female
  Weight: 80.7403 kg

DRUGS (2)
  1. PLAQUENIL [Suspect]
     Indication: BURSITIS
     Dosage: 2 DAILY
     Dates: start: 20090821, end: 20090901
  2. PLAQUENIL [Suspect]
     Indication: RHEUMATOID ARTHRITIS
     Dosage: 2 DAILY
     Dates: start: 20090821, end: 20090901

REACTIONS (9)
  - ASTHENIA [None]
  - FATIGUE [None]
  - FEELING ABNORMAL [None]
  - IRRITABILITY [None]
  - MUSCLE SPASMS [None]
  - NERVOUSNESS [None]
  - PAIN [None]
  - SOMNOLENCE [None]
  - VISION BLURRED [None]
